FAERS Safety Report 20199739 (Version 1)
Quarter: 2021Q4

REPORT INFORMATION
  Report Type: Spontaneous
  Country: US (occurrence: US)
  Receive Date: 20211217
  Receipt Date: 20211217
  Transmission Date: 20220303
  Serious: No
  Sender: FDA-Public Use
  Company Number: US-ORG100016242-2021000546

PATIENT
  Age: 33 Year
  Sex: Male

DRUGS (1)
  1. EXPAREL [Suspect]
     Active Substance: BUPIVACAINE
     Route: 065

REACTIONS (4)
  - Dysphagia [Unknown]
  - Drug ineffective [Unknown]
  - Facial pain [Unknown]
  - Hypoaesthesia [Unknown]
